FAERS Safety Report 18240610 (Version 1)
Quarter: 2020Q3

REPORT INFORMATION
  Report Type: Spontaneous
  Country: ZA (occurrence: ZA)
  Receive Date: 20200908
  Receipt Date: 20200908
  Transmission Date: 20201103
  Serious: Yes (Death)
  Sender: FDA-Public Use
  Company Number: ZA-ASTRAZENECA-2020SF13607

PATIENT

DRUGS (5)
  1. CYNT [Concomitant]
     Dosage: 0.2MG UNKNOWN
  2. ZUVAMOR [Suspect]
     Active Substance: ROSUVASTATIN
     Dosage: 20.0MG UNKNOWN
     Route: 048
  3. ONE ALPHA [Concomitant]
     Active Substance: ALFACALCIDOL
     Dosage: 0.25UG UNKNOWN
     Route: 065
  4. CO EXFORGE [Concomitant]
     Active Substance: AMLODIPINE BESYLATE\HYDROCHLOROTHIAZIDE\VALSARTAN
     Dosage: 10.0MG UNKNOWN
  5. CALCIFEROL [Concomitant]
     Dosage: 50000.0IU UNKNOWN

REACTIONS (1)
  - Death [Fatal]
